FAERS Safety Report 7401803-1 (Version None)
Quarter: 2011Q2

REPORT INFORMATION
  Report Type: 
  Country: None (occurrence: None)
  Receive Date: 20110408
  Receipt Date: 20110404
  Transmission Date: 20111010
  Serious: Yes (Other)
  Sender: FDA-Public Use
  Company Number: US-PFIZER INC-2011074484

PATIENT
  Sex: Female
  Weight: 77.098 kg

DRUGS (2)
  1. IBUPROFEN (ADVIL) [Suspect]
     Indication: NECK PAIN
     Dosage: 600 MG, 1X/DAY
     Route: 048
     Dates: end: 20110401
  2. IBUPROFEN (ADVIL) [Suspect]
     Indication: BACK PAIN

REACTIONS (1)
  - URTICARIA [None]
